FAERS Safety Report 19050894 (Version 1)
Quarter: 2021Q1

REPORT INFORMATION
  Report Type: Spontaneous
  Country: ES (occurrence: ES)
  Receive Date: 20210323
  Receipt Date: 20210323
  Transmission Date: 20210420
  Serious: Yes (Other)
  Sender: FDA-Public Use
  Company Number: ES-009507513-2103ESP004985

PATIENT
  Age: 45 Year
  Sex: Male

DRUGS (2)
  1. PEMBROLIZUMAB. [Suspect]
     Active Substance: PEMBROLIZUMAB
     Indication: MELANOMA RECURRENT
     Dosage: 2 MG/KG EVERY 3 WEEKS
     Dates: start: 201605, end: 2019
  2. PEMBROLIZUMAB. [Suspect]
     Active Substance: PEMBROLIZUMAB
     Indication: METASTASES TO LUNG

REACTIONS (3)
  - Immune-mediated hypothyroidism [Unknown]
  - Aplasia pure red cell [Recovering/Resolving]
  - Vitiligo [Unknown]

NARRATIVE: CASE EVENT DATE: 2016
